FAERS Safety Report 7952020-8 (Version None)
Quarter: 2011Q4

REPORT INFORMATION
  Report Type: 
  Country: None (occurrence: None)
  Receive Date: 20111201
  Receipt Date: 20111125
  Transmission Date: 20120403
  Serious: Yes (Hospitalization)
  Sender: FDA-Public Use
  Company Number: GB-GLAXOSMITHKLINE-B0765139A

PATIENT
  Age: 36 Year
  Sex: Male
  Weight: 78.6 kg

DRUGS (6)
  1. CLOZAPINE [Suspect]
     Indication: SCHIZOPHRENIA
     Dosage: 650MG PER DAY
     Route: 048
     Dates: start: 20110414, end: 20111029
  2. SENNA [Concomitant]
     Indication: CONSTIPATION
     Dosage: 2IUAX PER DAY
     Route: 048
  3. NICOTINE [Suspect]
     Indication: NICOTINE DEPENDENCE
     Route: 061
     Dates: start: 20111003
  4. LAMOTRIGINE [Concomitant]
     Indication: CONVULSION
     Dosage: 300MG PER DAY
     Route: 048
     Dates: start: 20110401
  5. VALPROATE SODIUM [Concomitant]
     Indication: CONVULSION
     Dosage: 1000MG PER DAY
     Route: 048
     Dates: start: 20110401
  6. PIRENZEPINE [Concomitant]
     Indication: EXTRAPYRAMIDAL DISORDER
     Dosage: 50MG PER DAY
     Route: 048

REACTIONS (3)
  - TOXICITY TO VARIOUS AGENTS [None]
  - DRUG LEVEL INCREASED [None]
  - MALAISE [None]
